FAERS Safety Report 25910296 (Version 4)
Quarter: 2025Q4

REPORT INFORMATION
  Report Type: Spontaneous
  Country: CN (occurrence: CN)
  Receive Date: 20251012
  Receipt Date: 20251027
  Transmission Date: 20260118
  Serious: Yes (Disabling, Other)
  Sender: SANOFI AVENTIS
  Company Number: CN-MLMSERVICE-20251001-PI664326-00249-1

PATIENT
  Age: 47 Year
  Sex: Female
  Weight: 70 kg

DRUGS (6)
  1. OXALIPLATIN [Suspect]
     Active Substance: OXALIPLATIN
     Indication: Adenocarcinoma gastric
     Dosage: 236 MG, QCY
     Route: 041
     Dates: start: 20240406
  2. OXALIPLATIN [Suspect]
     Active Substance: OXALIPLATIN
     Dosage: 200 MG, MONOTHERAPY
     Dates: start: 202408
  3. TS-1 [Concomitant]
     Active Substance: GIMERACIL\OTERACIL POTASSIUM\TEGAFUR
     Indication: Adenocarcinoma gastric
     Dosage: 2 DF, BID
     Route: 048
     Dates: start: 20240406, end: 2024
  4. ATORVASTATIN CALCIUM [Concomitant]
     Active Substance: ATORVASTATIN CALCIUM
     Dosage: UNK
  5. ASPIRIN [Concomitant]
     Active Substance: ASPIRIN
     Dosage: ENTERIC-COATED TABLETS
  6. NIFEDIPINE [Concomitant]
     Active Substance: NIFEDIPINE
     Dosage: SUSTAINED-RELEASE TABLETS

REACTIONS (10)
  - Iris cyst [Recovering/Resolving]
  - Blindness [Recovering/Resolving]
  - Optic discs blurred [Recovering/Resolving]
  - Toxicity to various agents [Recovering/Resolving]
  - Off label use [Recovering/Resolving]
  - Retinal detachment [Recovering/Resolving]
  - Subretinal fluid [Recovering/Resolving]
  - Retinal vascular disorder [Recovering/Resolving]
  - Cataract [Recovering/Resolving]
  - Anterior chamber inflammation [Recovering/Resolving]

NARRATIVE: CASE EVENT DATE: 20240501
